FAERS Safety Report 18425558 (Version 4)
Quarter: 2021Q1

REPORT INFORMATION
  Report Type: Spontaneous
  Country: JP (occurrence: JP)
  Receive Date: 20201026
  Receipt Date: 20210319
  Transmission Date: 20210419
  Serious: Yes (Death, Other)
  Sender: FDA-Public Use
  Company Number: JP-GLAXOSMITHKLINE-JP2020JPN207439

PATIENT
  Age: 36 Year
  Sex: Female
  Weight: 53 kg

DRUGS (9)
  1. PROGRAF [Suspect]
     Active Substance: TACROLIMUS
     Indication: SYSTEMIC LUPUS ERYTHEMATOSUS
     Dosage: 3 MG, 1D
     Route: 048
     Dates: start: 20130820
  2. BENLYSTA [Suspect]
     Active Substance: BELIMUMAB
     Indication: SYSTEMIC LUPUS ERYTHEMATOSUS
     Dosage: 200 MG, WE
     Route: 058
     Dates: start: 20190326, end: 20191230
  3. TAKELDA COMBINATION TABLETS [Suspect]
     Active Substance: ASPIRIN\LANSOPRAZOLE
     Indication: ANTIPHOSPHOLIPID SYNDROME
     Dosage: 1 DF, 1D
     Route: 048
     Dates: start: 20181127
  4. CELLCEPT [Suspect]
     Active Substance: MYCOPHENOLATE MOFETIL\MYCOPHENOLATE MOFETIL HYDROCHLORIDE
     Dosage: 1500 MG, 1D
     Route: 048
  5. PLAQUENIL TABLETS (HYDROXYCHLOROQUINE SULFATE) [Concomitant]
     Indication: SYSTEMIC LUPUS ERYTHEMATOSUS
     Dosage: 1 DF, 1D
     Route: 048
     Dates: start: 20170512
  6. PREDNISOLONE. [Suspect]
     Active Substance: PREDNISOLONE
     Indication: SYSTEMIC LUPUS ERYTHEMATOSUS
     Dosage: 9 MG, 1D
     Route: 048
     Dates: start: 20190910, end: 20191104
  7. PREDNISOLONE. [Suspect]
     Active Substance: PREDNISOLONE
     Dosage: 8 MG, 1D
     Route: 048
     Dates: start: 20191105
  8. CELLCEPT [Suspect]
     Active Substance: MYCOPHENOLATE MOFETIL\MYCOPHENOLATE MOFETIL HYDROCHLORIDE
     Indication: SYSTEMIC LUPUS ERYTHEMATOSUS
     Dosage: 1000 MG, 1D
     Route: 048
     Dates: start: 20160223
  9. CILOSTAZOL TABLETS [Suspect]
     Active Substance: CILOSTAZOL
     Indication: ANTIPHOSPHOLIPID SYNDROME
     Dosage: 2 DF, 1D
     Route: 048
     Dates: start: 20191216

REACTIONS (2)
  - Herpes zoster [Recovered/Resolved]
  - Aortic dissection [Fatal]

NARRATIVE: CASE EVENT DATE: 20190917
